FAERS Safety Report 5332968-3 (Version None)
Quarter: 2007Q2

REPORT INFORMATION
  Report Type: 
  Country: None (occurrence: None)
  Receive Date: 20070306
  Receipt Date: 20060608
  Transmission Date: 20071010
  Serious: Yes (Other)
  Sender: FDA-Public Use
  Company Number: A03200603679

PATIENT
  Age: 58 Year
  Sex: Female

DRUGS (3)
  1. PLAVIX [Suspect]
     Dosage: ORAL
     Route: 048
  2. HYDRALAZINE - TABLET [Suspect]
     Dosage: ORAL
     Route: 048
  3. CATAPRES [Suspect]
     Dosage: 3 PATCHES - TOPICAL
     Route: 061

REACTIONS (1)
  - CARDIAC FAILURE CONGESTIVE [None]
